FAERS Safety Report 4656722-0 (Version None)
Quarter: 2005Q2

REPORT INFORMATION
  Report Type: 
  Country: None (occurrence: None)
  Receive Date: 20050506
  Receipt Date: 20050425
  Transmission Date: 20051028
  Serious: Yes (Hospitalization)
  Sender: FDA-Public Use
  Company Number: 2005-04-2114

PATIENT
  Age: 58 Year
  Sex: Male

DRUGS (3)
  1. CLARINASE (LORATADINE 10MG / PSEUDOEPHEDRINE 240MG) TABLETS [Suspect]
     Dosage: 1 TB QD ORAL
     Route: 048
     Dates: start: 20050330, end: 20050401
  2. COVERSYL TB [Concomitant]
  3. TOCLASE EXPECTORANT [Concomitant]

REACTIONS (2)
  - HYPERTENSIVE CRISIS [None]
  - HYPERVENTILATION [None]
